FAERS Safety Report 9685618 (Version 1)
Quarter: 2013Q4

REPORT INFORMATION
  Report Type: Spontaneous
  Country: US (occurrence: US)
  Receive Date: 20131113
  Receipt Date: 20131113
  Transmission Date: 20140711
  Serious: No
  Sender: FDA-Public Use
  Company Number: US-GLAXOSMITHKLINE-A1015319A

PATIENT
  Age: 64 Year
  Sex: Male

DRUGS (10)
  1. CARVEDILOL [Suspect]
     Indication: CARDIAC FAILURE CONGESTIVE
     Route: 048
     Dates: start: 201001, end: 20130303
  2. DIGOXIN [Concomitant]
  3. EPLERENONE [Concomitant]
  4. LUNESTA [Concomitant]
  5. LASIX [Concomitant]
  6. LANTUS [Concomitant]
  7. HUMALOG [Concomitant]
  8. SYNTHROID [Concomitant]
  9. BENICAR [Concomitant]
  10. COUMADIN [Concomitant]

REACTIONS (2)
  - Dyspnoea [Not Recovered/Not Resolved]
  - Dizziness [Not Recovered/Not Resolved]
